FAERS Safety Report 7247112-5 (Version None)
Quarter: 2011Q1

REPORT INFORMATION
  Report Type: 
  Country: None (occurrence: None)
  Receive Date: 20110127
  Receipt Date: 20100601
  Transmission Date: 20110831
  Serious: No
  Sender: FDA-Public Use
  Company Number: US-BAUSCH-2010BL002987

PATIENT
  Age: 55 Year
  Sex: Female

DRUGS (3)
  1. ALAWAY [Suspect]
     Indication: OFF LABEL USE
     Route: 047
     Dates: start: 20100531, end: 20100531
  2. ALAWAY [Suspect]
     Indication: SEASONAL ALLERGY
     Route: 047
     Dates: start: 20100531, end: 20100531
  3. ALAWAY [Suspect]
     Indication: OCULAR HYPERAEMIA
     Route: 047
     Dates: start: 20100531, end: 20100531

REACTIONS (4)
  - DRY EYE [None]
  - CONDITION AGGRAVATED [None]
  - OCULAR HYPERAEMIA [None]
  - DRUG INEFFECTIVE FOR UNAPPROVED INDICATION [None]
